FAERS Safety Report 6897514-1 (Version None)
Quarter: 2010Q3

REPORT INFORMATION
  Report Type: 
  Country: None (occurrence: None)
  Receive Date: 20100802
  Receipt Date: 20070614
  Transmission Date: 20110219
  Serious: Yes (Other)
  Sender: FDA-Public Use
  Company Number: US-PFIZER INC-2007045108

PATIENT
  Age: 54 Year
  Sex: Male
  Weight: 88.181 kg

DRUGS (7)
  1. LYRICA [Suspect]
     Indication: CERVICOBRACHIAL SYNDROME
     Dates: start: 20070316, end: 20070425
  2. LEXAPRO [Concomitant]
  3. LIPITOR [Concomitant]
  4. HALCION [Concomitant]
  5. FLONASE [Concomitant]
  6. LORTAB [Concomitant]
  7. ALEVE (CAPLET) [Concomitant]

REACTIONS (1)
  - THROMBOCYTOPENIA [None]
